FAERS Safety Report 4334348-6 (Version None)
Quarter: 2004Q2

REPORT INFORMATION
  Report Type: 
  Country: None (occurrence: None)
  Receive Date: 20040405
  Receipt Date: 20040330
  Transmission Date: 20050107
  Serious: Yes (Hospitalization)
  Sender: FDA-Public Use
  Company Number: ERD2004A00003

PATIENT
  Age: 70 Year
  Sex: Male

DRUGS (9)
  1. PIOGLITAZONE HCL [Suspect]
     Indication: DIABETES MELLITUS
     Dosage: 45 MG ORAL
     Route: 048
     Dates: start: 20020425
  2. AMLODIPINE [Concomitant]
  3. RAMIPRIL [Concomitant]
  4. METFORMIN HCL [Concomitant]
  5. BISOPROLOL FUMARATE [Concomitant]
  6. ATORVASTATIN (ATORVASTATIN) [Concomitant]
  7. INSULIN (INSULIN /N/A/) [Concomitant]
  8. MOLSIDOMINE (MOLSIDOMINE) [Concomitant]
  9. FLUINDIONE (FLUINDIONE) [Concomitant]

REACTIONS (4)
  - ASTHENIA [None]
  - IRON DEFICIENCY ANAEMIA [None]
  - WEIGHT DECREASED [None]
  - WEIGHT FLUCTUATION [None]
